FAERS Safety Report 10235893 (Version 1)
Quarter: 2014Q2

REPORT INFORMATION
  Report Type: Spontaneous
  Country: US (occurrence: US)
  Receive Date: 20140613
  Receipt Date: 20140613
  Transmission Date: 20141212
  Serious: No
  Sender: FDA-Public Use
  Company Number: US-B.I. PHARMACEUTICALS,INC./RIDGEFIELD-2014-BI-25105BP

PATIENT
  Sex: Female
  Weight: 56 kg

DRUGS (2)
  1. ATROVENT [Suspect]
     Indication: ASTHMA
     Route: 055
  2. ATROVENT [Suspect]
     Indication: CHRONIC OBSTRUCTIVE PULMONARY DISEASE

REACTIONS (1)
  - Off label use [Unknown]
